FAERS Safety Report 8497997-X (Version None)
Quarter: 2012Q3

REPORT INFORMATION
  Report Type: 
  Country: None (occurrence: None)
  Receive Date: 20120709
  Receipt Date: 20120618
  Transmission Date: 20120928
  Serious: No
  Sender: FDA-Public Use
  Company Number: US-AMGEN-USASP2012038457

PATIENT
  Age: 60 Year

DRUGS (4)
  1. TRAMADOL HCL [Concomitant]
     Indication: PAIN
     Dosage: UNK
  2. CELEBREX [Concomitant]
     Dosage: UNK
  3. HUMIRA [Concomitant]
     Indication: PRODUCT USED FOR UNKNOWN INDICATION
     Dosage: 40 MG/ 0.8 ML PEN
  4. ENBREL [Suspect]
     Indication: ANKYLOSING SPONDYLITIS
     Dosage: UNK

REACTIONS (3)
  - URINARY TRACT INFECTION [None]
  - ULCER [None]
  - DRUG INEFFECTIVE [None]
